FAERS Safety Report 12835964 (Version 3)
Quarter: 2017Q1

REPORT INFORMATION
  Report Type: Spontaneous
  Country: AR (occurrence: AR)
  Receive Date: 20161011
  Receipt Date: 20170331
  Transmission Date: 20170428
  Serious: Yes (Other)
  Sender: FDA-Public Use
  Company Number: AR-PFIZER INC-2016459777

PATIENT
  Age: 62 Year
  Sex: Male

DRUGS (1)
  1. SUTENT [Suspect]
     Active Substance: SUNITINIB MALATE
     Indication: RENAL CELL CARCINOMA
     Dosage: 50 MG, DAILY/ CYCLIC 4/2 SCHEME AND THEN A RECESS PERIOD
     Dates: start: 20131112

REACTIONS (8)
  - Immunodeficiency [Not Recovered/Not Resolved]
  - Food intolerance [Recovering/Resolving]
  - Nausea [Recovering/Resolving]
  - Malaise [Recovered/Resolved]
  - Drug intolerance [Recovered/Resolved]
  - Yellow skin [Recovered/Resolved]
  - Skin exfoliation [Recovering/Resolving]
  - Vomiting [Recovering/Resolving]

NARRATIVE: CASE EVENT DATE: 2017
